FAERS Safety Report 4534059-8 (Version None)
Quarter: 2004Q4

REPORT INFORMATION
  Report Type: 
  Country: None (occurrence: None)
  Receive Date: 20041214
  Receipt Date: 20041006
  Transmission Date: 20050328
  Serious: No
  Sender: FDA-Public Use
  Company Number: USA041080404

PATIENT
  Age: 66 Year
  Sex: Male
  Weight: 91 kg

DRUGS (8)
  1. CIALIS [Suspect]
     Dosage: 20 MG
     Dates: start: 20041001
  2. HYDROCHLOROTHIAZIDE [Concomitant]
  3. LIPITOR [Concomitant]
  4. ALTACE (RAMIPRIL) [Concomitant]
  5. METOPROLOL [Concomitant]
  6. ASPIRIN [Concomitant]
  7. VITAMIN C [Concomitant]
  8. MULTIVITAMINS NOS (MULTIVITAMINS NOS) [Concomitant]

REACTIONS (1)
  - DRUG INEFFECTIVE [None]
